FAERS Safety Report 20305232 (Version 1)
Quarter: 2022Q1

REPORT INFORMATION
  Report Type: Other
  Country: None (occurrence: US)
  Receive Date: 20220106
  Receipt Date: 20220106
  Transmission Date: 20220423
  Serious: Yes (Hospitalization, Other)
  Sender: FDA-Public Use
  Company Number: US-Prestige Brands -2123670

PATIENT
  Age: 71 Year
  Sex: Female

DRUGS (8)
  1. CIMETIDINE [Suspect]
     Active Substance: CIMETIDINE
     Indication: Gastrooesophageal reflux disease
     Route: 048
  2. LIPITOR [Concomitant]
     Active Substance: ATORVASTATIN CALCIUM
  3. SYNTHROID [Concomitant]
     Active Substance: LEVOTHYROXINE SODIUM
  4. ZOFRAN [Concomitant]
     Active Substance: ONDANSETRON HYDROCHLORIDE
  5. VITAMIN A [Concomitant]
     Active Substance: VITAMIN A
  6. VITAMIN D [Concomitant]
     Active Substance: VITAMIN D NOS
  7. COVID-19 VACCINE [Concomitant]
  8. PREDNISONE [Concomitant]
     Active Substance: PREDNISONE

REACTIONS (2)
  - Drug-induced liver injury [Recovering/Resolving]
  - Toxicity to various agents [Recovering/Resolving]
